FAERS Safety Report 25637765 (Version 2)
Quarter: 2025Q3

REPORT INFORMATION
  Report Type: Spontaneous
  Country: US (occurrence: US)
  Receive Date: 20250804
  Receipt Date: 20250825
  Transmission Date: 20251021
  Serious: No
  Sender: BRISTOL-MYERS SQUIBB COMPANY
  Company Number: US-BRISTOL-MYERS SQUIBB COMPANY-2025-107588

PATIENT
  Age: 66 Year
  Sex: Male

DRUGS (1)
  1. POMALYST [Suspect]
     Active Substance: POMALIDOMIDE
     Indication: Bone neoplasm
     Dosage: TAKE 1 CAPSULE BY MOUTH ONCE A DAY FOR 3 WEEKS AND THEN OFF FOR 1 WEEK
     Route: 048

REACTIONS (1)
  - Off label use [Recovering/Resolving]
